FAERS Safety Report 23960180 (Version 1)
Quarter: 2024Q2

REPORT INFORMATION
  Report Type: Spontaneous
  Country: NL (occurrence: None)
  Receive Date: 20240611
  Receipt Date: 20240611
  Transmission Date: 20240716
  Serious: Yes (Hospitalization)
  Sender: FDA-Public Use
  Company Number: NL-Umedica-000051

PATIENT
  Age: 42 Year
  Sex: Male

DRUGS (16)
  1. CARBAMAZEPINE [Suspect]
     Active Substance: CARBAMAZEPINE
     Indication: Schizoaffective disorder
     Dosage: 200 MG TWICE DAILY WAS INCREASED TO 600 MG DAILY
     Route: 048
  2. CLOZAPINE [Suspect]
     Active Substance: CLOZAPINE
     Indication: Schizoaffective disorder
     Dosage: DOSE WAS ADJUSTED FROM 600 TO 500MG?ONCE DAILY
  3. HALOPERIDOL [Concomitant]
     Active Substance: HALOPERIDOL
     Indication: Dysphoria
     Dosage: LONG ACTING INJECTION, LATER SWITCHED TO ORAL HALOPERIDOL
  4. FLUVOXAMINE [Concomitant]
     Active Substance: FLUVOXAMINE
     Indication: Enzyme inhibition
     Dosage: INCREASED TO 50MG
  5. LITHIUM CARBONATE [Concomitant]
     Active Substance: LITHIUM CARBONATE
  6. ZUCLOPENTHIXOL [Concomitant]
     Active Substance: ZUCLOPENTHIXOL
     Dosage: LONG ACTING INJECTION
  7. GLYCOPYRRONIUM [Concomitant]
     Active Substance: GLYCOPYRRONIUM
     Dosage: AT BED TIME
  8. LACTULOSE [Concomitant]
     Active Substance: LACTULOSE
     Indication: Laxative supportive care
  9. MEMANTINE [Concomitant]
     Active Substance: MEMANTINE
  10. LORAZEPAM [Concomitant]
     Active Substance: LORAZEPAM
     Dosage: AS NEEDED
  11. DROPERIDOL [Concomitant]
     Active Substance: DROPERIDOL
     Dosage: AS NEEDED
  12. CARBAMAZEPINE [Suspect]
     Active Substance: CARBAMAZEPINE
     Indication: Schizoaffective disorder
     Route: 048
  13. CLOZAPINE [Suspect]
     Active Substance: CLOZAPINE
     Indication: Schizoaffective disorder
     Route: 048
  14. CLOZAPINE [Suspect]
     Active Substance: CLOZAPINE
     Indication: Schizoaffective disorder
     Route: 048
  15. FLUVOXAMINE [Concomitant]
     Active Substance: FLUVOXAMINE
     Indication: Enzyme inhibition
  16. ZUCLOPENTHIXOL [Concomitant]
     Active Substance: ZUCLOPENTHIXOL
     Dosage: LONG ACTING INJECTION

REACTIONS (3)
  - Ileus paralytic [Recovered/Resolved]
  - Off label use [Unknown]
  - Drug interaction [Unknown]
